FAERS Safety Report 8005620-3 (Version None)
Quarter: 2011Q4

REPORT INFORMATION
  Report Type: 
  Country: None (occurrence: None)
  Receive Date: 20111223
  Receipt Date: 20110930
  Transmission Date: 20120403
  Serious: Yes (Other)
  Sender: FDA-Public Use
  Company Number: JP-NAPPMUNDI-GBR-2011-0009273

PATIENT
  Age: 80 Year
  Sex: Female

DRUGS (3)
  1. BUPRENORPHINE [Suspect]
     Dosage: 10 MCG, UNK
     Dates: end: 20111024
  2. BUPRENORPHINE [Suspect]
     Indication: BACK PAIN
     Dosage: 5 MCG, Q1H
     Route: 062
     Dates: start: 20111025, end: 20111109
  3. BUPRENORPHINE [Suspect]
     Dosage: 5 MCG, Q1H
     Dates: start: 20110923

REACTIONS (2)
  - SOMNOLENCE [None]
  - DELIRIUM [None]
